FAERS Safety Report 5869583-9 (Version None)
Quarter: 2008Q3

REPORT INFORMATION
  Report Type: 
  Country: None (occurrence: None)
  Receive Date: 20080828
  Receipt Date: 20080818
  Transmission Date: 20090109
  Serious: Yes (Hospitalization)
  Sender: FDA-Public Use
  Company Number: 2008-00111

PATIENT
  Age: 62 Year
  Sex: Male
  Weight: 74 kg

DRUGS (4)
  1. VELCADE [Suspect]
     Indication: MULTIPLE MYELOMA
     Dosage: 2.4 MG, INTRVENOUS
     Route: 042
     Dates: start: 20070906, end: 20071227
  2. DOXORUBICIN HCL [Suspect]
     Indication: MULTIPLE MYELOMA
  3. DEXAMETHASONE TAB [Suspect]
     Indication: MULTIPLE MYELOMA
  4. LEVOTHYROXINE SODIUM [Concomitant]

REACTIONS (5)
  - COMPLEX PARTIAL SEIZURES [None]
  - DISTURBANCE IN ATTENTION [None]
  - MYALGIA [None]
  - RHABDOMYOLYSIS [None]
  - STATUS EPILEPTICUS [None]
